FAERS Safety Report 18992082 (Version 5)
Quarter: 2021Q3

REPORT INFORMATION
  Report Type: Spontaneous
  Country: IN (occurrence: IN)
  Receive Date: 20210310
  Receipt Date: 20210824
  Transmission Date: 20211014
  Serious: Yes (Other)
  Sender: FDA-Public Use
  Company Number: IN-PFIZER INC-2020162033

PATIENT
  Age: 60 Year
  Sex: Female

DRUGS (7)
  1. PALBACE [Suspect]
     Active Substance: PALBOCICLIB
     Dosage: 125 MG, 1X/DAY
     Route: 048
     Dates: start: 20180613
  2. PALBACE [Suspect]
     Active Substance: PALBOCICLIB
     Dosage: 125 MG, 1X/DAY
     Route: 048
     Dates: start: 20210709
  3. PALBACE [Suspect]
     Active Substance: PALBOCICLIB
     Dosage: 100 MG
     Route: 048
  4. FULVESTRANT. [Concomitant]
     Active Substance: FULVESTRANT
     Dosage: 500 MG, EVERY 4 WEEKS (Q4WEEKS)
  5. DENOSUMAB [Concomitant]
     Active Substance: DENOSUMAB
     Dosage: 120 MG, MONTHLY (EVERY 4 WKS)
     Route: 058
     Dates: end: 202101
  6. PALBACE [Suspect]
     Active Substance: PALBOCICLIB
     Indication: BREAST CANCER METASTATIC
     Dosage: 125 MG, 1X/DAY
     Route: 048
     Dates: start: 20180416
  7. FULVESTRANT. [Concomitant]
     Active Substance: FULVESTRANT
     Dosage: 500 MG, MONTHLY (EVERY 4 WKS)
     Route: 030

REACTIONS (5)
  - Osteonecrosis of jaw [Unknown]
  - Off label use [Unknown]
  - Tooth disorder [Unknown]
  - Oral pain [Unknown]
  - Mouth ulceration [Unknown]
